FAERS Safety Report 4541533-7 (Version None)
Quarter: 2004Q4

REPORT INFORMATION
  Report Type: 
  Country: None (occurrence: None)
  Receive Date: 20041227
  Receipt Date: 20041215
  Transmission Date: 20050328
  Serious: Yes (Life-Threatening)
  Sender: FDA-Public Use
  Company Number: 2003AP04258

PATIENT
  Age: 64 Year
  Sex: Male

DRUGS (11)
  1. XYLOCAINE [Suspect]
     Indication: EPIDURAL ANAESTHESIA
     Dosage: 5 ML ED
     Route: 008
  2. XYLOCAINE [Suspect]
     Indication: EPIDURAL ANAESTHESIA
     Dosage: 4 ML ED
     Route: 008
  3. XYLOCAINE [Suspect]
     Indication: EPIDURAL ANAESTHESIA
     Dosage: 2 ML ED
     Route: 008
  4. DIPRIVAN [Concomitant]
  5. LIDOCAINE HCL [Concomitant]
  6. THIOPENTAL SODIUM [Concomitant]
  7. FENTANYL CITRATE [Concomitant]
  8. VECURONIUM BROMIDE [Concomitant]
  9. SEVOFRANE [Concomitant]
  10. FENTANYL CITRATE [Concomitant]
  11. EPHEDRIN [Concomitant]

REACTIONS (17)
  - AORTIC VALVE INCOMPETENCE [None]
  - ARTERIOSPASM CORONARY [None]
  - BLOOD PH INCREASED [None]
  - BLOOD PRESSURE DECREASED [None]
  - BLOOD PRESSURE INCREASED [None]
  - BLOOD SODIUM DECREASED [None]
  - BUNDLE BRANCH BLOCK RIGHT [None]
  - CARDIAC ARREST [None]
  - DRUG INEFFECTIVE [None]
  - MYOCARDIAL INFARCTION [None]
  - PCO2 DECREASED [None]
  - RESPIRATORY ALKALOSIS [None]
  - SYMPATHETIC NERVE INJURY [None]
  - VENTRICULAR EXTRASYSTOLES [None]
  - VENTRICULAR FIBRILLATION [None]
  - VENTRICULAR HYPOKINESIA [None]
  - VENTRICULAR TACHYCARDIA [None]
